FAERS Safety Report 9872339 (Version 2)
Quarter: 2017Q1

REPORT INFORMATION
  Report Type: Other
  Country: US (occurrence: US)
  Receive Date: 20140206
  Receipt Date: 20170210
  Transmission Date: 20170429
  Serious: Yes (Hospitalization)
  Sender: FDA-Public Use
  Company Number: US-ACORDA-ACO_100151_2013

PATIENT
  Sex: Male
  Weight: 106.58 kg

DRUGS (2)
  1. AMPYRA [Suspect]
     Active Substance: DALFAMPRIDINE
     Indication: GAIT DISTURBANCE
     Dosage: 10 MG, Q 12 HRS
     Route: 048
     Dates: start: 20130314, end: 2013
  2. COPAXONE [Concomitant]
     Active Substance: GLATIRAMER ACETATE
     Indication: PRODUCT USED FOR UNKNOWN INDICATION
     Dosage: UNK
     Dates: start: 2010

REACTIONS (11)
  - Irritability [Unknown]
  - Gait disturbance [Unknown]
  - Central nervous system lesion [Unknown]
  - Anxiety [Unknown]
  - Fatigue [Unknown]
  - Walking aid user [Unknown]
  - Pain in extremity [Unknown]
  - Paraesthesia [Unknown]
  - Gait disturbance [Unknown]
  - Insomnia [Unknown]
  - Hypoaesthesia [Unknown]

NARRATIVE: CASE EVENT DATE: 2013
